FAERS Safety Report 23220813 (Version 1)
Quarter: 2023Q4

REPORT INFORMATION
  Report Type: Spontaneous
  Country: US (occurrence: US)
  Receive Date: 20231123
  Receipt Date: 20231123
  Transmission Date: 20240110
  Serious: No
  Sender: FDA-Public Use
  Company Number: US-SA-SAC20231117000213

PATIENT
  Age: 67 Year
  Sex: Male

DRUGS (1)
  1. DUPIXENT [Suspect]
     Active Substance: DUPILUMAB
     Indication: Asthma
     Dosage: DOSE: 300 MG FREQUENCY: EVERY OTHER WEEK
     Route: 058

REACTIONS (4)
  - Dyspnoea [Unknown]
  - Swollen tongue [Unknown]
  - Eye irritation [Unknown]
  - Asthma [Unknown]
